FAERS Safety Report 6719305-4 (Version None)
Quarter: 2010Q2

REPORT INFORMATION
  Report Type: 
  Country: None (occurrence: None)
  Receive Date: 20100511
  Receipt Date: 20100427
  Transmission Date: 20101027
  Serious: No
  Sender: FDA-Public Use
  Company Number: PHHY2010NL18996

PATIENT
  Sex: Female
  Weight: 63 kg

DRUGS (6)
  1. ZOMETA [Suspect]
     Dosage: 4 MG ONCE IN 4 WEEKS
     Route: 042
     Dates: start: 20100122
  2. ZOMETA [Suspect]
     Dosage: 4 MG ONCE IN 4 WEEKS
     Route: 042
     Dates: start: 20100301
  3. ZOMETA [Suspect]
     Dosage: 4 MG ONCE IN 4 WEEKS
     Route: 042
     Dates: start: 20100329
  4. HORMONES [Concomitant]
  5. CALCIUM [Concomitant]
  6. VITAMIN D [Concomitant]

REACTIONS (3)
  - BACK PAIN [None]
  - GINGIVAL BLEEDING [None]
  - PAIN IN JAW [None]
